FAERS Safety Report 24286346 (Version 1)
Quarter: 2024Q3

REPORT INFORMATION
  Report Type: Spontaneous
  Country: US (occurrence: US)
  Receive Date: 20240905
  Receipt Date: 20240905
  Transmission Date: 20241016
  Serious: Yes (Hospitalization)
  Sender: FRESENIUS KABI
  Company Number: US-FreseniusKabi-FK202413299

PATIENT
  Age: 72 Year
  Sex: Male

DRUGS (6)
  1. LEUCOVORIN [Suspect]
     Active Substance: LEUCOVORIN\LEUCOVORIN CALCIUM
     Indication: Adenocarcinoma pancreas
     Dosage: FOLFIRI REGIMEN??CESSATION OF CHEMOTHERAPY
  2. FLUOROURACIL [Suspect]
     Active Substance: FLUOROURACIL
     Indication: Adenocarcinoma pancreas
     Dosage: FOLFIRI REGIMEN??CESSATION OF CHEMOTHERAPY
  3. IRINOTECAN [Suspect]
     Active Substance: IRINOTECAN
     Indication: Adenocarcinoma pancreas
     Dosage: FOLFIRI REGIMEN??CESSATION OF CHEMOTHERAPY
  4. APIXABAN [Concomitant]
     Active Substance: APIXABAN
     Indication: Portal vein thrombosis
  5. DIPHENHYDRAMINE [Concomitant]
     Active Substance: DIPHENHYDRAMINE
     Indication: Agitation
  6. HALOPERIDOL [Concomitant]
     Active Substance: HALOPERIDOL
     Indication: Agitation

REACTIONS (1)
  - Substance-induced psychotic disorder [Recovered/Resolved]
